FAERS Safety Report 5728982-6 (Version None)
Quarter: 2008Q2

REPORT INFORMATION
  Report Type: 
  Country: None (occurrence: None)
  Receive Date: 20080506
  Receipt Date: 20080429
  Transmission Date: 20081010
  Serious: Yes (Other)
  Sender: FDA-Public Use
  Company Number: US-MERCK-0804USA01702

PATIENT
  Age: 38 Year
  Sex: Female
  Weight: 110 kg

DRUGS (4)
  1. JANUVIA [Suspect]
     Indication: TYPE 2 DIABETES MELLITUS
     Route: 048
     Dates: start: 20070222, end: 20080401
  2. JANUVIA [Suspect]
     Indication: INSULIN RESISTANCE
     Route: 048
     Dates: start: 20070222, end: 20080401
  3. DIOVAN HCT [Concomitant]
     Indication: BLOOD PRESSURE
     Route: 048
  4. ACTOS [Suspect]
     Route: 065

REACTIONS (3)
  - ALANINE AMINOTRANSFERASE INCREASED [None]
  - ASPARTATE AMINOTRANSFERASE INCREASED [None]
  - BLOOD GLUCOSE INCREASED [None]
